FAERS Safety Report 25058509 (Version 1)
Quarter: 2025Q1

REPORT INFORMATION
  Report Type: Spontaneous
  Country: IN (occurrence: IN)
  Receive Date: 20250310
  Receipt Date: 20250310
  Transmission Date: 20250409
  Serious: Yes (Other)
  Sender: PFIZER
  Company Number: IN-PFIZER INC-PV202200129417

PATIENT
  Age: 53 Year
  Sex: Female
  Weight: 68 kg

DRUGS (5)
  1. LORLATINIB [Suspect]
     Active Substance: LORLATINIB
     Indication: Lung cancer metastatic
     Dosage: 100 MG, 1X/DAY
     Route: 048
     Dates: start: 20221130
  2. LORLATINIB [Suspect]
     Active Substance: LORLATINIB
     Route: 048
     Dates: start: 202212
  3. LORLATINIB [Suspect]
     Active Substance: LORLATINIB
     Dosage: 75 MG
     Route: 048
     Dates: start: 202212
  4. BEVACIZUMAB [Concomitant]
     Active Substance: BEVACIZUMAB
     Dates: start: 20240802
  5. SOLU-MEDROL [Concomitant]
     Active Substance: METHYLPREDNISOLONE SODIUM SUCCINATE
     Dates: start: 20240802

REACTIONS (18)
  - Hypertension [Unknown]
  - Metastases to central nervous system [Unknown]
  - Blood triglycerides increased [Unknown]
  - Oedema [Recovering/Resolving]
  - Weight increased [Unknown]
  - Haemoglobin decreased [Unknown]
  - Neck pain [Unknown]
  - Cough [Unknown]
  - Radicular pain [Unknown]
  - Fatigue [Unknown]
  - Body mass index increased [Unknown]
  - Pollakiuria [Unknown]
  - Micturition urgency [Unknown]
  - Asthenia [Unknown]
  - Dysarthria [Unknown]
  - Memory impairment [Unknown]
  - Muscular weakness [Not Recovered/Not Resolved]
  - Liver function test abnormal [Unknown]

NARRATIVE: CASE EVENT DATE: 20221220
